FAERS Safety Report 5975030-9 (Version None)
Quarter: 2008Q4

REPORT INFORMATION
  Report Type: 
  Country: None (occurrence: None)
  Receive Date: 20081128
  Receipt Date: 20081120
  Transmission Date: 20090506
  Serious: Yes (Other)
  Sender: FDA-Public Use
  Company Number: 2008-04391

PATIENT

DRUGS (1)
  1. VELCADE [Suspect]
     Indication: DRUG USE FOR UNKNOWN INDICATION

REACTIONS (5)
  - BLOOD LACTATE DEHYDROGENASE INCREASED [None]
  - C-REACTIVE PROTEIN DECREASED [None]
  - HAEMOGLOBIN DECREASED [None]
  - LIGHT CHAIN ANALYSIS DECREASED [None]
  - THROMBOTIC THROMBOCYTOPENIC PURPURA [None]
